FAERS Safety Report 25365039 (Version 2)
Quarter: 2025Q3

REPORT INFORMATION
  Report Type: Spontaneous
  Country: US (occurrence: US)
  Receive Date: 20250527
  Receipt Date: 20250714
  Transmission Date: 20251020
  Serious: No
  Sender: SANOFI AVENTIS
  Company Number: US-SA-2025SA149039

PATIENT
  Age: 39 Year
  Sex: Female

DRUGS (5)
  1. DUPIXENT [Suspect]
     Active Substance: DUPILUMAB
     Indication: Eosinophilic oesophagitis
     Dosage: 300 MG, QW
     Route: 058
     Dates: start: 202210
  2. DUPIXENT [Suspect]
     Active Substance: DUPILUMAB
     Dosage: 300 MG, QW
     Route: 058
  3. NAPROXEN [Concomitant]
     Active Substance: NAPROXEN
  4. WEGOVY [Concomitant]
     Active Substance: SEMAGLUTIDE
  5. TRINTELLIX [Concomitant]
     Active Substance: VORTIOXETINE HYDROBROMIDE

REACTIONS (5)
  - Nausea [Unknown]
  - Throat tightness [Unknown]
  - Dysphagia [Unknown]
  - Vomiting [Unknown]
  - Maternal exposure during pregnancy [Unknown]
